FAERS Safety Report 23806414 (Version 1)
Quarter: 2024Q2

REPORT INFORMATION
  Report Type: Spontaneous
  Country: IN (occurrence: IN)
  Receive Date: 20240502
  Receipt Date: 20240502
  Transmission Date: 20240716
  Serious: No
  Sender: FDA-Public Use
  Company Number: IN-ALKEM LABORATORIES LIMITED-IN-ALKEM-2024-01345

PATIENT
  Age: 5 Year
  Sex: Male

DRUGS (9)
  1. ERYTHROMYCIN [Suspect]
     Active Substance: ERYTHROMYCIN
     Indication: Pityriasis lichenoides et varioliformis acuta
     Dosage: 40 MILLIGRAM/KILOGRAM, QD (PER DAY)
     Route: 048
  2. DAPSONE [Suspect]
     Active Substance: DAPSONE
     Indication: Pityriasis lichenoides et varioliformis acuta
     Dosage: 2.5 MILLIGRAM/KILOGRAM, QD (PER DAY)
     Route: 065
  3. METHOTREXATE [Suspect]
     Active Substance: METHOTREXATE
     Indication: Pityriasis lichenoides et varioliformis acuta
     Dosage: 7.5 MILLIGRAM, ONCE WEEKLY (TWO DOSES OF WEEKLY)
     Route: 065
  4. METHOTREXATE [Suspect]
     Active Substance: METHOTREXATE
     Dosage: 0.25 MILLIGRAM/KILOGRAM, ONCE WEEKLY (TAPERED)
     Route: 065
  5. PREDNISOLONE [Suspect]
     Active Substance: PREDNISOLONE
     Indication: Pityriasis lichenoides et varioliformis acuta
     Dosage: 2 MILLIGRAM/KILOGRAM, QD (PER DAY)
     Route: 065
  6. PREDNISOLONE [Suspect]
     Active Substance: PREDNISOLONE
     Dosage: 1 MILLIGRAM/KILOGRAM, QD (PER DAY) (TAPERED)
     Route: 065
  7. ACYCLOVIR [Concomitant]
     Active Substance: ACYCLOVIR
     Indication: Eczema herpeticum
     Dosage: UNK
     Route: 048
  8. LEVETIRACETAM [Concomitant]
     Active Substance: LEVETIRACETAM
     Indication: Generalised tonic-clonic seizure
     Dosage: UNK
     Route: 065
  9. LEVOFLOXACIN [Concomitant]
     Active Substance: LEVOFLOXACIN
     Indication: Pseudomonas infection
     Dosage: UNK
     Route: 065

REACTIONS (1)
  - Treatment failure [Unknown]
